FAERS Safety Report 7596866-7 (Version None)
Quarter: 2011Q3

REPORT INFORMATION
  Report Type: 
  Country: None (occurrence: None)
  Receive Date: 20110708
  Receipt Date: 20110705
  Transmission Date: 20111222
  Serious: Yes (Hospitalization, Other)
  Sender: FDA-Public Use
  Company Number: US-PFIZER INC-2011150049

PATIENT
  Sex: Female

DRUGS (4)
  1. LYRICA [Suspect]
     Indication: LIMB INJURY
     Dosage: 150 MG, 4X/DAY
     Route: 048
  2. LIPITOR [Suspect]
     Indication: BLOOD PRESSURE
     Dosage: 40 MG, DAILY
     Route: 048
  3. LIPITOR [Suspect]
     Indication: BLOOD CHOLESTEROL INCREASED
  4. TOPROL-XL [Suspect]
     Indication: CARDIAC DISORDER
     Dosage: 40 MG, DAILY
     Route: 048

REACTIONS (1)
  - HERPES ZOSTER [None]
